FAERS Safety Report 7963683-5 (Version None)
Quarter: 2011Q4

REPORT INFORMATION
  Report Type: 
  Country: None (occurrence: None)
  Receive Date: 20111205
  Receipt Date: 20111117
  Transmission Date: 20120403
  Serious: Yes (Other)
  Sender: FDA-Public Use
  Company Number: 1000025218

PATIENT
  Age: 85 Year
  Sex: Female

DRUGS (3)
  1. MEMANTINE HYDROCHLORIDE [Suspect]
     Indication: DEMENTIA WITH LEWY BODIES
     Dosage: 10 MG (10 MG, 1 IN 1 D)
  2. LEXAPRO [Suspect]
     Indication: ELDERLY
     Dosage: 10 MG (10 MG, 1 IN 1 D)
  3. RISPERIDONE [Suspect]

REACTIONS (3)
  - HYPOKALAEMIA [None]
  - HYPOPHAGIA [None]
  - DIARRHOEA [None]
